FAERS Safety Report 4582333-1 (Version None)
Quarter: 2005Q1

REPORT INFORMATION
  Report Type: 
  Country: None (occurrence: None)
  Receive Date: 20050215
  Receipt Date: 20050202
  Transmission Date: 20050727
  Serious: Yes (Hospitalization, Other)
  Sender: FDA-Public Use
  Company Number: JP-JNJFOC-20050103312

PATIENT
  Sex: Male

DRUGS (15)
  1. REMICADE [Suspect]
     Route: 042
  2. REMICADE [Suspect]
     Indication: RHEUMATOID ARTHRITIS
     Route: 042
  3. RHEUMATREX [Concomitant]
     Route: 049
  4. RHEUMATREX [Concomitant]
     Indication: RHEUMATOID ARTHRITIS
     Route: 049
  5. PREDONINE [Concomitant]
     Route: 049
  6. PREDONINE [Concomitant]
     Route: 049
  7. HAMAL [Concomitant]
     Route: 049
  8. MOBIC [Concomitant]
     Indication: RHEUMATOID ARTHRITIS
     Route: 049
  9. FOLIAMIN [Concomitant]
     Indication: RHEUMATOID ARTHRITIS
     Route: 049
  10. METHOTREXATE [Concomitant]
     Route: 049
  11. TAKEPRON [Concomitant]
     Route: 049
  12. ONEALFA [Concomitant]
     Route: 049
  13. GASTROM [Concomitant]
     Route: 049
  14. BENET [Concomitant]
     Route: 049
  15. RIMATIL [Concomitant]
     Route: 049

REACTIONS (4)
  - CRYPTOCOCCOSIS [None]
  - HAEMOPHILUS INFECTION [None]
  - PNEUMONITIS CRYPTOCOCCAL [None]
  - RESPIRATORY MONILIASIS [None]
